FAERS Safety Report 19013185 (Version 2)
Quarter: 2021Q3

REPORT INFORMATION
  Report Type: Report from Study
  Country: JP (occurrence: JP)
  Receive Date: 20210315
  Receipt Date: 20210722
  Transmission Date: 20211014
  Serious: Yes (Other)
  Sender: FDA-Public Use
  Company Number: JP-GILEAD-2019-0420515

PATIENT
  Age: 60 Year
  Sex: Male

DRUGS (11)
  1. EMTRICITABINE/TENOFOVIR ALAFENAMIDE [Suspect]
     Active Substance: EMTRICITABINE\TENOFOVIR
     Indication: HIV INFECTION
     Dosage: 1 DOSAGE FORM, QD
     Route: 048
     Dates: start: 20170329
  2. SANCOBA [Concomitant]
     Active Substance: CYANOCOBALAMIN
     Dosage: UNK
  3. EMTRICITABINE;TENOFOVIR DISOPROXIL FUMARATE [Suspect]
     Active Substance: EMTRICITABINE\TENOFOVIR DISOPROXIL FUMARATE
     Indication: HIV INFECTION
     Dosage: 1 DOSAGE FORM, QD
     Route: 048
  4. ISENTRESS [Suspect]
     Active Substance: RALTEGRAVIR POTASSIUM
     Indication: HIV INFECTION
     Dosage: 1200 MG
     Route: 048
     Dates: start: 20181024
  5. BROTIZOLAM [Concomitant]
     Active Substance: BROTIZOLAM
     Dosage: UNK
  6. HYALEIN [Concomitant]
     Active Substance: HYALURONATE SODIUM
     Dosage: UNK
  7. FEBURIC [Concomitant]
     Active Substance: FEBUXOSTAT
     Dosage: UNK
  8. ISENTRESS [Suspect]
     Active Substance: RALTEGRAVIR POTASSIUM
     Dosage: 800 MG
     Route: 048
     Dates: end: 20181023
  9. GLIMICRON [Concomitant]
     Active Substance: GLICLAZIDE
     Dosage: UNK
  10. ISENTRESS [Suspect]
     Active Substance: RALTEGRAVIR POTASSIUM
     Indication: HIV INFECTION
     Dosage: 400 MG
     Route: 048
     Dates: start: 20170329
  11. GLACTIV [Concomitant]
     Active Substance: SITAGLIPTIN
     Dosage: UNK

REACTIONS (4)
  - Dyslipidaemia [Recovering/Resolving]
  - Eczema [Recovering/Resolving]
  - Seborrhoeic keratosis [Recovering/Resolving]
  - Skin papilloma [Recovering/Resolving]

NARRATIVE: CASE EVENT DATE: 20170425
